FAERS Safety Report 7372319-6 (Version None)
Quarter: 2011Q1

REPORT INFORMATION
  Report Type: 
  Country: None (occurrence: None)
  Receive Date: 20110324
  Receipt Date: 20110315
  Transmission Date: 20110831
  Serious: Yes (Hospitalization)
  Sender: FDA-Public Use
  Company Number: B0703949A

PATIENT
  Sex: Female
  Weight: 51 kg

DRUGS (5)
  1. NYSTATINE [Concomitant]
  2. ENALAPRIL MALEATE [Concomitant]
     Dosage: 10MG PER DAY
     Route: 048
  3. PANTOZOL [Suspect]
     Dosage: 40MG PER DAY
     Route: 048
  4. PREDNISONE [Concomitant]
     Route: 048
  5. AUGMENTIN '125' [Suspect]
     Route: 048
     Dates: start: 20110103, end: 20110105

REACTIONS (3)
  - RASH [None]
  - HEPATITIS CHOLESTATIC [None]
  - ABDOMINAL DISCOMFORT [None]
